FAERS Safety Report 9957136 (Version 1)
Quarter: 2014Q1

REPORT INFORMATION
  Report Type: Report from Study
  Country: US (occurrence: US)
  Receive Date: 20140304
  Receipt Date: 20140304
  Transmission Date: 20141002
  Serious: No
  Sender: FDA-Public Use
  Company Number: US-ABBVIE-13P-163-1097716-00

PATIENT
  Age: 58 Year
  Sex: Male

DRUGS (3)
  1. HUMIRA [Suspect]
     Indication: PSORIASIS
  2. PANTOPRAZOLE [Concomitant]
     Indication: ANTACID THERAPY
  3. CRESTOR [Concomitant]
     Indication: BLOOD CHOLESTEROL

REACTIONS (4)
  - Injection site pain [Recovered/Resolved]
  - Bronchitis [Recovered/Resolved]
  - Psoriasis [Recovered/Resolved]
  - Injection site haemorrhage [Recovered/Resolved]
